FAERS Safety Report 20043002 (Version 2)
Quarter: 2021Q4

REPORT INFORMATION
  Report Type: Spontaneous
  Country: BR (occurrence: BR)
  Receive Date: 20211108
  Receipt Date: 20211208
  Transmission Date: 20220303
  Serious: Yes (Other)
  Sender: FDA-Public Use
  Company Number: BR-NOVARTISPH-NVSC2021BR227259

PATIENT
  Sex: Male
  Weight: 76 kg

DRUGS (5)
  1. TRILEPTAL [Suspect]
     Active Substance: OXCARBAZEPINE
     Indication: Seizure
     Dosage: 1.5 DF, QD
     Route: 065
  2. TRILEPTAL [Suspect]
     Active Substance: OXCARBAZEPINE
     Dosage: 1 DF, QD (STARTED AROUND 2016 OR 2017) (AT NIGHT)
     Route: 048
  3. TRILEPTAL [Suspect]
     Active Substance: OXCARBAZEPINE
     Dosage: 300 MG (START DATE- 5 YEARS AGO)
     Route: 065
  4. TRILEPTAL [Suspect]
     Active Substance: OXCARBAZEPINE
     Dosage: 450 MG
     Route: 065
  5. LOSARTAN POTASSIUM [Concomitant]
     Active Substance: LOSARTAN POTASSIUM
     Indication: Hypertension
     Dosage: 1 DF, BID (1 IN MORNING, 1 AT NIGHT)
     Route: 065

REACTIONS (5)
  - Seizure [Unknown]
  - Movement disorder [Recovered/Resolved]
  - Ischaemia [Unknown]
  - Malaise [Unknown]
  - Drug ineffective [Unknown]
